FAERS Safety Report 23302345 (Version 5)
Quarter: 2025Q2

REPORT INFORMATION
  Report Type: Spontaneous
  Country: US (occurrence: US)
  Receive Date: 20231215
  Receipt Date: 20250424
  Transmission Date: 20250717
  Serious: Yes (Other)
  Sender: PFIZER
  Company Number: US-PFIZER INC-202300439161

PATIENT
  Age: 68 Year
  Sex: Female
  Weight: 74.84 kg

DRUGS (1)
  1. XELJANZ XR [Suspect]
     Active Substance: TOFACITINIB CITRATE
     Indication: Rheumatoid arthritis
     Dates: start: 2018

REACTIONS (5)
  - Cardiac pacemaker insertion [Unknown]
  - Cough [Unknown]
  - COVID-19 [Recovered/Resolved]
  - Sinusitis [Unknown]
  - Road traffic accident [Unknown]

NARRATIVE: CASE EVENT DATE: 20210101
